FAERS Safety Report 11126084 (Version 1)
Quarter: 2015Q2

REPORT INFORMATION
  Report Type: Report from Study
  Country: US (occurrence: US)
  Receive Date: 20150520
  Receipt Date: 20150520
  Transmission Date: 20150821
  Serious: Yes (Hospitalization)
  Sender: FDA-Public Use
  Company Number: US-SA-2015SA058402

PATIENT
  Age: 54 Year
  Sex: Male

DRUGS (5)
  1. PROVIGIL [Concomitant]
     Active Substance: MODAFINIL
     Indication: FATIGUE
     Dosage: STRENGTH: 100 MG?DOSAGE: 1PER DAY IN AM
     Dates: start: 201503
  2. AUBAGIO [Suspect]
     Active Substance: TERIFLUNOMIDE
     Indication: MULTIPLE SCLEROSIS
     Route: 048
     Dates: start: 201409
  3. OXYCODONE [Concomitant]
     Active Substance: OXYCODONE
     Indication: PAIN
     Dosage: EVERY 04 HOURS AS NEEDED; MAX. 5 PER DAY.?STRENGTH: 30 MG?DOSE: 1-2
     Dates: start: 2010
  4. SOMA [Concomitant]
     Active Substance: CARISOPRODOL
     Indication: MUSCLE SPASMS
     Dosage: STRENGTH: 350 MG?DOSAGE: 1-2 PER DAY AS NEEDED
     Dates: start: 2010
  5. AUBAGIO [Suspect]
     Active Substance: TERIFLUNOMIDE
     Indication: RELAPSING-REMITTING MULTIPLE SCLEROSIS
     Route: 048
     Dates: start: 201409

REACTIONS (2)
  - False positive investigation result [Unknown]
  - Unevaluable event [Unknown]

NARRATIVE: CASE EVENT DATE: 201501
